FAERS Safety Report 4773002-3 (Version None)
Quarter: 2005Q3

REPORT INFORMATION
  Report Type: 
  Country: None (occurrence: None)
  Receive Date: 20050916
  Receipt Date: 20050907
  Transmission Date: 20060218
  Serious: Yes (Death, Other)
  Sender: FDA-Public Use
  Company Number: 2005122997

PATIENT
  Age: 59 Year
  Sex: Male

DRUGS (6)
  1. AZITHROMYCIN [Suspect]
     Indication: PYREXIA
     Dosage: ORAL
     Route: 048
     Dates: start: 20050817, end: 20050817
  2. SELBEX (TEPRENONE) [Suspect]
     Indication: ILL-DEFINED DISORDER
     Dosage: ORAL
     Route: 048
     Dates: start: 20050817, end: 20050817
  3. LYSOZYME HYDROCHLORIDE (LYSOZYME HYDROCHLORIDE) [Suspect]
     Indication: ILL-DEFINED DISORDER
     Dates: start: 20050817, end: 20050817
  4. VOLTAREN [Concomitant]
  5. SHIGMABITAN (PYRIDOXINE HYDROCHLORIDE/CYANOCOBALAMIN) (PYRIDOXINE HYDR [Concomitant]
  6. TOWATHIEM (CAFFEINE, PARACETAMOL, PROMETHAZINE, SALICYLAMIDE) [Concomitant]

REACTIONS (9)
  - ALANINE AMINOTRANSFERASE INCREASED [None]
  - ASPARTATE AMINOTRANSFERASE INCREASED [None]
  - BLOOD PRESSURE DECREASED [None]
  - DIARRHOEA [None]
  - DISSEMINATED INTRAVASCULAR COAGULATION [None]
  - HYPERVENTILATION [None]
  - MULTI-ORGAN FAILURE [None]
  - SEPSIS [None]
  - VOMITING [None]
